FAERS Safety Report 19604577 (Version 1)
Quarter: 2021Q3

REPORT INFORMATION
  Report Type: Spontaneous
  Country: CA (occurrence: CA)
  Receive Date: 20210723
  Receipt Date: 20210723
  Transmission Date: 20211014
  Serious: Yes (Other)
  Sender: FDA-Public Use
  Company Number: CA-ROCHE-2874205

PATIENT
  Sex: Female

DRUGS (9)
  1. HYDROXYCHLOROQUINE SULFATE. [Concomitant]
     Active Substance: HYDROXYCHLOROQUINE SULFATE
  2. SYNTHROID [Concomitant]
     Active Substance: LEVOTHYROXINE SODIUM
  3. PREDNISONE. [Concomitant]
     Active Substance: PREDNISONE
     Route: 065
  4. URSODIOL. [Concomitant]
     Active Substance: URSODIOL
  5. ACETAMINOPHEN. [Concomitant]
     Active Substance: ACETAMINOPHEN
  6. RITUXIMAB. [Suspect]
     Active Substance: RITUXIMAB
     Indication: OVERLAP SYNDROME
     Route: 042
  7. CHOLESTYRAMINE. [Concomitant]
     Active Substance: CHOLESTYRAMINE
  8. KETOROLAC [Concomitant]
     Active Substance: KETOROLAC TROMETHAMINE
  9. RIFAMPIN. [Suspect]
     Active Substance: RIFAMPIN
     Indication: PRODUCT USED FOR UNKNOWN INDICATION
     Route: 065

REACTIONS (13)
  - Drug intolerance [Unknown]
  - Skin hyperpigmentation [Unknown]
  - Asthenia [Unknown]
  - Pruritus [Unknown]
  - Headache [Unknown]
  - Insomnia [Unknown]
  - Myalgia [Unknown]
  - Musculoskeletal stiffness [Unknown]
  - Telangiectasia [Unknown]
  - Pain in extremity [Unknown]
  - Polyarthritis [Unknown]
  - Tender joint count [Unknown]
  - Arthralgia [Unknown]
